FAERS Safety Report 23744252 (Version 1)
Quarter: 2024Q2

REPORT INFORMATION
  Report Type: Spontaneous
  Country: US (occurrence: None)
  Receive Date: 20240414
  Receipt Date: 20240414
  Transmission Date: 20240715
  Serious: No
  Sender: FDA-Public Use
  Company Number: None

PATIENT
  Age: 45 Year
  Sex: Female
  Weight: 74.25 kg

DRUGS (1)
  1. CLINDAMYCIN HYDROCHLORIDE [Suspect]
     Active Substance: CLINDAMYCIN HYDROCHLORIDE
     Indication: Tooth infection
     Dosage: OTHER QUANTITY : 14 CAPSULE(S);?FREQUENCY : EVERY 12 HOURS;?
     Route: 048
     Dates: start: 20240411, end: 20240414

REACTIONS (8)
  - Pain [None]
  - Swelling face [None]
  - Peripheral swelling [None]
  - Generalised oedema [None]
  - Weight increased [None]
  - Urine flow decreased [None]
  - Loss of personal independence in daily activities [None]
  - Impaired work ability [None]

NARRATIVE: CASE EVENT DATE: 20240412
